FAERS Safety Report 24154642 (Version 1)
Quarter: 2024Q3

REPORT INFORMATION
  Report Type: Report from Study
  Country: US (occurrence: US)
  Receive Date: 20240731
  Receipt Date: 20240731
  Transmission Date: 20241017
  Serious: No
  Sender: ROCHE
  Company Number: US-ROCHE-10000041876

PATIENT
  Age: 71 Year
  Sex: Male

DRUGS (9)
  1. OCREVUS [Suspect]
     Active Substance: OCRELIZUMAB
     Indication: Primary progressive multiple sclerosis
     Route: 042
  2. LIORESAL [Concomitant]
     Active Substance: BACLOFEN
  3. CALTRATE [Concomitant]
     Active Substance: CALCIUM CARBONATE
  4. ARICEPT [Concomitant]
     Active Substance: DONEPEZIL HYDROCHLORIDE
  5. NAMENDA [Concomitant]
     Active Substance: MEMANTINE HYDROCHLORIDE
  6. LOPRESSOR [Concomitant]
     Active Substance: METOPROLOL TARTRATE
  7. LOVAZA [Concomitant]
     Active Substance: OMEGA-3-ACID ETHYL ESTERS
  8. ZOCOR [Concomitant]
     Active Substance: SIMVASTATIN
  9. CHOLECALCIFEROL [Concomitant]
     Active Substance: CHOLECALCIFEROL

REACTIONS (7)
  - Mean cell volume increased [Unknown]
  - Mean platelet volume increased [Unknown]
  - Blood creatinine increased [Unknown]
  - Blood bilirubin increased [Unknown]
  - COVID-19 [Unknown]
  - Seizure [Unknown]
  - Loss of consciousness [Unknown]
